FAERS Safety Report 22267388 (Version 1)
Quarter: 2023Q2

REPORT INFORMATION
  Report Type: Spontaneous
  Country: US (occurrence: US)
  Receive Date: 20230428
  Receipt Date: 20230428
  Transmission Date: 20230721
  Serious: No
  Sender: FDA-Public Use
  Company Number: US-Blueprint Medicines Corporation-1085

PATIENT
  Sex: Male

DRUGS (1)
  1. AYVAKIT [Suspect]
     Active Substance: AVAPRITINIB
     Indication: Pleural effusion
     Route: 065
     Dates: start: 20230411

REACTIONS (4)
  - Fatigue [Unknown]
  - Taste disorder [Unknown]
  - Feeling abnormal [Unknown]
  - Off label use [Unknown]
